FAERS Safety Report 6224342-2 (Version None)
Quarter: 2009Q2

REPORT INFORMATION
  Report Type: 
  Country: None (occurrence: None)
  Receive Date: 20090612
  Receipt Date: 20090313
  Transmission Date: 20091009
  Serious: No
  Sender: FDA-Public Use
  Company Number: US-ABBOTT-09P-163-0562909-00

PATIENT
  Sex: Male
  Weight: 79.45 kg

DRUGS (7)
  1. HUMIRA [Suspect]
     Indication: CROHN'S DISEASE
     Route: 058
     Dates: start: 20080201, end: 20080401
  2. HUMIRA [Suspect]
     Route: 058
     Dates: start: 20080401
  3. PREDNISONE [Concomitant]
     Indication: CROHN'S DISEASE
     Dosage: 40MG TAPER
     Route: 048
  4. ZOLOFT [Concomitant]
     Indication: DEPRESSION
     Route: 048
  5. ZOLOFT [Concomitant]
     Indication: ANXIETY
  6. WELLBUTRIN XL [Concomitant]
     Indication: DEPRESSION
     Dosage: QD
     Route: 048
  7. WELLBUTRIN XL [Concomitant]
     Indication: ANXIETY

REACTIONS (2)
  - DISEASE PROGRESSION [None]
  - DRUG INEFFECTIVE [None]
